FAERS Safety Report 20516067 (Version 4)
Quarter: 2022Q2

REPORT INFORMATION
  Report Type: Spontaneous
  Country: NL (occurrence: NL)
  Receive Date: 20220225
  Receipt Date: 20220606
  Transmission Date: 20220720
  Serious: Yes (Life-Threatening, Hospitalization, Other)
  Sender: FDA-Public Use
  Company Number: NL-SUN PHARMACEUTICAL INDUSTRIES LTD-2022R1-326424

PATIENT
  Age: 21 Year
  Sex: Male

DRUGS (3)
  1. BACLOFEN [Suspect]
     Active Substance: BACLOFEN
     Indication: Product used for unknown indication
     Dosage: 850 MICROGRAM, ONCE A DAY
     Route: 037
  2. MIDAZOLAM [Concomitant]
     Active Substance: MIDAZOLAM
     Indication: Product used for unknown indication
     Dosage: UNK
     Route: 065
  3. MANNITOL [Concomitant]
     Active Substance: MANNITOL
     Indication: Intracranial pressure increased
     Dosage: 0.5 GRAM PER KILOGRAM
     Route: 065

REACTIONS (15)
  - Toxicity to various agents [Recovered/Resolved]
  - Medical device site swelling [Recovered/Resolved]
  - Brain death [Recovered/Resolved]
  - Coma [Recovered/Resolved]
  - Hypoxia [Recovered/Resolved]
  - Bradycardia [Recovered/Resolved]
  - Brain oedema [Recovered/Resolved]
  - Respiratory arrest [Recovered/Resolved]
  - Encephalopathy [Recovered/Resolved]
  - Cyanosis [Recovered/Resolved]
  - Respiratory acidosis [Recovered/Resolved]
  - Hypotonia [Recovered/Resolved]
  - Mydriasis [Recovered/Resolved]
  - Overdose [Recovered/Resolved]
  - Incorrect route of product administration [Recovered/Resolved]
